FAERS Safety Report 9340865 (Version 1)
Quarter: 2013Q2

REPORT INFORMATION
  Report Type: Spontaneous
  Country: ES (occurrence: None)
  Receive Date: 20130605
  Receipt Date: 20130605
  Transmission Date: 20140414
  Serious: Yes (Hospitalization, Other)
  Sender: FDA-Public Use
  Company Number: 2012AP004361

PATIENT
  Age: 44 Year
  Sex: Female

DRUGS (6)
  1. FLUCONAZOLE (FLUCONAZOLE) [Suspect]
     Indication: VULVOVAGINAL CANDIDIASIS
  2. CYCLOSPORIN [Suspect]
     Indication: IMMUNOSUPPRESSANT DRUG THERAPY
     Route: 048
  3. KALETRA [Suspect]
     Indication: ANTIRETROVIRAL THERAPY
  4. MYCOPHENOLATE [Concomitant]
  5. RALTEGRAVIR [Concomitant]
  6. LAMIVUDINE [Concomitant]

REACTIONS (6)
  - Hyperbilirubinaemia [None]
  - Immunosuppressant drug level increased [None]
  - Anxiety postoperative [None]
  - Drug interaction [None]
  - Hepatotoxicity [None]
  - Drug level increased [None]
